FAERS Safety Report 5531763-X (Version None)
Quarter: 2007Q4

REPORT INFORMATION
  Report Type: 
  Country: None (occurrence: None)
  Receive Date: 20071128
  Receipt Date: 20071128
  Transmission Date: 20080405
  Serious: Yes (Hospitalization)
  Sender: FDA-Public Use
  Company Number: None

PATIENT
  Age: 75 Year
  Sex: Female
  Weight: 97 kg

DRUGS (23)
  1. WARFARIN SODIUM [Suspect]
     Indication: THROMBOSIS PROPHYLAXIS
     Dosage: 5 MG PO DAILY
     Route: 048
  2. NAPROXEN [Suspect]
     Indication: PAIN
     Dosage: 500MG BID
  3. TICLOPIDINE HCL [Suspect]
     Indication: CEREBROVASCULAR ACCIDENT PROPHYLAXIS
     Dosage: 250MG BID
  4. TYLENOL [Concomitant]
  5. CRESTOR [Concomitant]
  6. DOXEPIN HCL [Concomitant]
  7. EFFEXOR [Concomitant]
  8. IRON [Concomitant]
  9. LOSARTAN POTASSIUM [Concomitant]
  10. LOTREL [Concomitant]
  11. LYRICA [Concomitant]
  12. METFORMIN HCL [Concomitant]
  13. METOPROLOL [Concomitant]
  14. MOM [Concomitant]
  15. OXYMORPHONES [Concomitant]
  16. TOPAMAX [Concomitant]
  17. TRAMADOL HCL [Concomitant]
  18. MAXZIDE [Concomitant]
  19. WELLBUTRIN [Concomitant]
  20. ZETIA [Concomitant]
  21. NASACORT [Concomitant]
  22. SENNA [Concomitant]
  23. SIMETHICONE [Concomitant]

REACTIONS (5)
  - ANAEMIA [None]
  - BLOOD PRESSURE SYSTOLIC DECREASED [None]
  - GASTRITIS EROSIVE [None]
  - HYPERKALAEMIA [None]
  - RENAL FAILURE ACUTE [None]
